FAERS Safety Report 7636722-9 (Version None)
Quarter: 2011Q3

REPORT INFORMATION
  Report Type: 
  Country: None (occurrence: None)
  Receive Date: 20110726
  Receipt Date: 20110722
  Transmission Date: 20111222
  Serious: Yes (Life-Threatening)
  Sender: FDA-Public Use
  Company Number: CN-ASTRAZENECA-2011SE43614

PATIENT
  Age: 43 Year
  Sex: Male

DRUGS (3)
  1. LIDOCAINE [Suspect]
     Indication: NERVE BLOCK
  2. VITAMIN B-12 [Concomitant]
  3. NS [Concomitant]

REACTIONS (5)
  - CYANOSIS [None]
  - MYDRIASIS [None]
  - LOSS OF CONSCIOUSNESS [None]
  - RESPIRATORY ARREST [None]
  - PUPILLARY REFLEX IMPAIRED [None]
